FAERS Safety Report 5632508-5 (Version None)
Quarter: 2008Q1

REPORT INFORMATION
  Report Type: 
  Country: None (occurrence: None)
  Receive Date: 20080131
  Receipt Date: 20071022
  Transmission Date: 20080703
  Serious: No
  Sender: FDA-Public Use
  Company Number: 163-21880-07101331

PATIENT
  Age: 44 Year
  Sex: Male

DRUGS (2)
  1. REVLIMID [Suspect]
     Indication: MULTIPLE MYELOMA
     Dosage: 25, 81 MG, DAILY 21/28 DAYS, ORAL
     Route: 048
     Dates: start: 20070727
  2. ASPIRIN [Concomitant]

REACTIONS (1)
  - CONTUSION [None]
